FAERS Safety Report 12438882 (Version 1)
Quarter: 2016Q2

REPORT INFORMATION
  Report Type: Spontaneous
  Country: US (occurrence: US)
  Receive Date: 20160606
  Receipt Date: 20160606
  Transmission Date: 20160815
  Serious: Yes (Hospitalization)
  Sender: FDA-Public Use
  Company Number: US-DSJP-DSU-2015-131688

PATIENT

DRUGS (1)
  1. BENICAR [Suspect]
     Active Substance: OLMESARTAN MEDOXOMIL
     Indication: HYPERTENSION
     Dosage: UNK
     Dates: start: 2014, end: 201510

REACTIONS (4)
  - Unevaluable event [Unknown]
  - Diarrhoea [Unknown]
  - Blood pressure decreased [Unknown]
  - Acute kidney injury [Unknown]

NARRATIVE: CASE EVENT DATE: 2015
